FAERS Safety Report 22586859 (Version 1)
Quarter: 2023Q2

REPORT INFORMATION
  Report Type: Report from Study
  Country: US (occurrence: US)
  Receive Date: 20230611
  Receipt Date: 20230611
  Transmission Date: 20230722
  Serious: Yes (Other)
  Sender: FDA-Public Use
  Company Number: US-BEIGENE-BGN-2023-001246

PATIENT

DRUGS (7)
  1. BRUKINSA [Suspect]
     Active Substance: ZANUBRUTINIB
     Indication: Waldenstrom^s macroglobulinaemia
     Dosage: 80 MILLIGRAM, BID
     Route: 048
     Dates: start: 202211
  2. BRUKINSA [Suspect]
     Active Substance: ZANUBRUTINIB
     Dosage: 80 MILLIGRAM, BID
     Route: 048
     Dates: start: 20230213
  3. BRUKINSA [Suspect]
     Active Substance: ZANUBRUTINIB
     Dosage: 1 DOSAGE FORM, DAILY
     Route: 048
  4. BRUKINSA [Suspect]
     Active Substance: ZANUBRUTINIB
     Dosage: 1 DOSAGE FORM, QD
     Route: 048
  5. BRUKINSA [Suspect]
     Active Substance: ZANUBRUTINIB
     Dosage: 1 DOSAGE FORM, BID
     Route: 048
     Dates: start: 20230316
  6. BRUKINSA [Suspect]
     Active Substance: ZANUBRUTINIB
     Dosage: 80 MILLIGRAM, BID
     Route: 048
     Dates: start: 20230213
  7. BRUKINSA [Suspect]
     Active Substance: ZANUBRUTINIB
     Dosage: 80 MILLIGRAM, BID
     Route: 048
     Dates: start: 20230213

REACTIONS (8)
  - Haemorrhage subcutaneous [Recovering/Resolving]
  - Sensory disturbance [Recovered/Resolved]
  - Blood pressure increased [Unknown]
  - Red cell distribution width increased [Unknown]
  - Arthralgia [Unknown]
  - Spinal pain [Unknown]
  - Product dose omission issue [Unknown]
  - Prescribed underdose [Unknown]
